FAERS Safety Report 24319757 (Version 1)
Quarter: 2024Q3

REPORT INFORMATION
  Report Type: Spontaneous
  Country: IN (occurrence: IN)
  Receive Date: 20240914
  Receipt Date: 20240914
  Transmission Date: 20241016
  Serious: Yes (Other)
  Sender: Unknown Manufacturer
  Company Number: IN-KOANAAP-SML-IN-2024-00910

PATIENT
  Age: 52 Year
  Sex: Female

DRUGS (14)
  1. LENVATINIB [Suspect]
     Active Substance: LENVATINIB
     Indication: Endometrial cancer stage III
  2. LENVATINIB [Suspect]
     Active Substance: LENVATINIB
     Indication: Microsatellite instability cancer
  3. IRINOTECAN [Suspect]
     Active Substance: IRINOTECAN
     Indication: Endometrial cancer stage III
     Dosage: 125 MG PER SQUARE METER
  4. IRINOTECAN [Suspect]
     Active Substance: IRINOTECAN
     Indication: Microsatellite instability cancer
  5. PACLITAXEL [Suspect]
     Active Substance: PACLITAXEL
     Indication: Endometrial cancer stage III
     Dosage: 175 MG PER SQUARE METER OF BODY SURFACE AREA
  6. PACLITAXEL [Suspect]
     Active Substance: PACLITAXEL
     Indication: Microsatellite instability cancer
  7. CARBOPLATIN [Suspect]
     Active Substance: CARBOPLATIN
     Indication: Endometrial cancer stage III
     Dosage: 175 MG PER SQUARE METER OF BODY SURFACE AREA
  8. CARBOPLATIN [Suspect]
     Active Substance: CARBOPLATIN
     Indication: Microsatellite instability cancer
  9. CISPLATIN [Suspect]
     Active Substance: CISPLATIN
     Indication: Endometrial cancer stage III
  10. CISPLATIN [Suspect]
     Active Substance: CISPLATIN
     Indication: Microsatellite instability cancer
  11. BEVACIZUMAB [Suspect]
     Active Substance: BEVACIZUMAB
     Indication: Endometrial cancer stage III
  12. BEVACIZUMAB [Suspect]
     Active Substance: BEVACIZUMAB
     Indication: Microsatellite instability cancer
  13. PEMBROLIZUMAB [Suspect]
     Active Substance: PEMBROLIZUMAB
     Indication: Endometrial cancer stage III
  14. PEMBROLIZUMAB [Suspect]
     Active Substance: PEMBROLIZUMAB
     Indication: Microsatellite instability cancer

REACTIONS (4)
  - Drug ineffective [Unknown]
  - Skin exfoliation [Recovered/Resolved]
  - Disease progression [Recovering/Resolving]
  - Burning sensation [Recovered/Resolved]
